FAERS Safety Report 8340014-2 (Version None)
Quarter: 2012Q2

REPORT INFORMATION
  Report Type: 
  Country: None (occurrence: None)
  Receive Date: 20120507
  Receipt Date: 20120503
  Transmission Date: 20120825
  Serious: Yes (Other)
  Sender: FDA-Public Use
  Company Number: US-PFIZER INC-2012109296

PATIENT
  Sex: Male

DRUGS (1)
  1. LYRICA [Suspect]
     Indication: NERVE INJURY
     Dosage: 100 MG, 3X/DAY
     Dates: end: 20120201

REACTIONS (5)
  - OESOPHAGEAL PERFORATION [None]
  - HYPOAESTHESIA [None]
  - DIABETIC COMA [None]
  - BLOOD GLUCOSE INCREASED [None]
  - BLOOD PRESSURE ABNORMAL [None]
